FAERS Safety Report 9028246 (Version 1)
Quarter: 2013Q1

REPORT INFORMATION
  Report Type: Spontaneous
  Country: US (occurrence: None)
  Receive Date: 20130115
  Receipt Date: 20130115
  Transmission Date: 20140127
  Serious: No
  Sender: FDA-Public Use
  Company Number: None

PATIENT
  Age: 76 Year
  Sex: Male
  Weight: 95.26 kg

DRUGS (1)
  1. SODIUM  CHLORIDE [Suspect]
     Dates: start: 201212

REACTIONS (5)
  - Increased upper airway secretion [None]
  - Sinus disorder [None]
  - Pharyngeal oedema [None]
  - Dysphagia [None]
  - Haemorrhage [None]
